FAERS Safety Report 24169261 (Version 2)
Quarter: 2024Q4

REPORT INFORMATION
  Report Type: Spontaneous
  Country: US (occurrence: US)
  Receive Date: 20240802
  Receipt Date: 20241212
  Transmission Date: 20250115
  Serious: Yes (Other)
  Sender: PFIZER
  Company Number: US-PFIZER INC-PV202400100371

PATIENT
  Age: 51 Year
  Sex: Female

DRUGS (1)
  1. XELJANZ XR [Suspect]
     Active Substance: TOFACITINIB CITRATE
     Indication: Rheumatoid arthritis
     Dosage: UNK

REACTIONS (6)
  - Systemic lupus erythematosus [Unknown]
  - Drug ineffective [Unknown]
  - Arthralgia [Unknown]
  - Headache [Unknown]
  - Back pain [Not Recovered/Not Resolved]
  - Migraine [Not Recovered/Not Resolved]
